FAERS Safety Report 24794155 (Version 3)
Quarter: 2025Q2

REPORT INFORMATION
  Report Type: Spontaneous
  Country: US (occurrence: US)
  Receive Date: 20241231
  Receipt Date: 20250407
  Transmission Date: 20250716
  Serious: Yes (Life-Threatening, Hospitalization)
  Sender: PFIZER
  Company Number: US-PFIZER INC-PV202400169312

PATIENT
  Age: 89 Year
  Sex: Female

DRUGS (2)
  1. OXALIPLATIN [Suspect]
     Active Substance: OXALIPLATIN
     Indication: Linitis plastica
  2. CAPECITABINE [Suspect]
     Active Substance: CAPECITABINE
     Indication: Linitis plastica

REACTIONS (5)
  - Diarrhoea [Recovered/Resolved]
  - Abnormal faeces [Recovered/Resolved]
  - Anal incontinence [Recovered/Resolved]
  - Electrolyte depletion [Recovered/Resolved]
  - Off label use [Unknown]
